FAERS Safety Report 7873181-5 (Version None)
Quarter: 2011Q4

REPORT INFORMATION
  Report Type: 
  Country: None (occurrence: None)
  Receive Date: 20111030
  Receipt Date: 20110425
  Transmission Date: 20120403
  Serious: No
  Sender: FDA-Public Use
  Company Number: US-AMGEN-USASP2011021548

PATIENT
  Age: 52 Year
  Sex: Female

DRUGS (2)
  1. ENBREL [Suspect]
     Dosage: 50 MG, QWK
  2. ENBREL [Suspect]
     Indication: RHEUMATOID ARTHRITIS
     Dates: start: 20061001

REACTIONS (5)
  - INJECTION SITE PAIN [None]
  - LACERATION [None]
  - INJECTION SITE HAEMATOMA [None]
  - PRODUCTIVE COUGH [None]
  - COUGH [None]
